FAERS Safety Report 9861038 (Version 2)
Quarter: 2014Q1

REPORT INFORMATION
  Report Type: Spontaneous
  Country: JP (occurrence: JP)
  Receive Date: 20140202
  Receipt Date: 20140202
  Transmission Date: 20141002
  Serious: No
  Sender: FDA-Public Use
  Company Number: JP-ALLERGAN-1303004US

PATIENT
  Age: 41 Year
  Sex: Male

DRUGS (2)
  1. BOTOX [Suspect]
     Indication: TORTICOLLIS
     Dosage: UNK UNK, SINGLE
     Route: 030
     Dates: start: 20120406, end: 20120406
  2. BOTOX [Suspect]
     Dosage: UNK, SINGLE
     Route: 030
     Dates: start: 20120710, end: 20120710

REACTIONS (2)
  - Dysphagia [Recovered/Resolved]
  - Dysphagia [Recovered/Resolved]
